FAERS Safety Report 6308692-7 (Version None)
Quarter: 2009Q3

REPORT INFORMATION
  Report Type: 
  Country: None (occurrence: None)
  Receive Date: 20090813
  Receipt Date: 20090810
  Transmission Date: 20100115
  Serious: Yes (Other)
  Sender: FDA-Public Use
  Company Number: US-WYE-H08765509

PATIENT
  Sex: Female
  Weight: 85.35 kg

DRUGS (9)
  1. PREMARIN [Suspect]
     Indication: VULVOVAGINAL PRURITUS
     Dosage: 0.625 MG, 1/2 TO 2 G DAILY
     Route: 067
     Dates: start: 20081101, end: 20081123
  2. PREMARIN [Suspect]
     Indication: ANAL PRURITUS
  3. BUSPAR [Concomitant]
     Route: 065
  4. FEMHRT [Concomitant]
     Dosage: UNKNOWN
     Route: 065
  5. ZOCOR [Concomitant]
     Dosage: 40MG AT BEDTIME
     Route: 065
  6. LORTAB [Concomitant]
     Dosage: 5 MG EVERY 1 PRN
     Route: 065
  7. ATARAX [Concomitant]
     Dosage: 50 MG EVERY 1 PRN
     Route: 065
  8. LEXAPRO [Concomitant]
     Route: 065
  9. LISINOPRIL AND HYDROCHLOROTHIAZIDE [Concomitant]
     Dosage: 20/25MG 1 TABLET QD
     Route: 048

REACTIONS (8)
  - ANAL INFLAMMATION [None]
  - DRUG INEFFECTIVE [None]
  - FUNGAL INFECTION [None]
  - GENITAL ERYTHEMA [None]
  - GENITAL SWELLING [None]
  - HAEMORRHOIDS [None]
  - PERIANAL ERYTHEMA [None]
  - VULVAL CANCER [None]
